FAERS Safety Report 24390351 (Version 1)
Quarter: 2024Q4

REPORT INFORMATION
  Report Type: Spontaneous
  Country: US (occurrence: US)
  Receive Date: 20241003
  Receipt Date: 20241003
  Transmission Date: 20250115
  Serious: Yes (Hospitalization)
  Sender: SYMOGEN
  Company Number: US-PARTNER THERAPEUTICS-2024PTX00097

PATIENT
  Age: 18 Year
  Sex: Male
  Weight: 81.406 kg

DRUGS (5)
  1. LEUKINE [Suspect]
     Active Substance: SARGRAMOSTIM
     Indication: Adrenal gland cancer
     Dosage: 2 ML (500 ?G) , 1X/DAY FOR 7 DOSES
     Route: 058
     Dates: start: 20181020
  2. LEUKINE [Suspect]
     Active Substance: SARGRAMOSTIM
     Indication: Neuroendocrine tumour
     Dosage: 1.9 ML (475 ?G), 1X/DAY 24 HOURS AFTER CHEMOTHERAPY ON DAYS 6-12 OF A 28 DAY CYCLE
     Route: 058
  3. STERILE WATER [Concomitant]
     Active Substance: WATER
     Dosage: 1 ML
  4. NEUPOGEN [Concomitant]
     Active Substance: FILGRASTIM
  5. NEULASTA [Concomitant]
     Active Substance: PEGFILGRASTIM

REACTIONS (3)
  - Illness [Not Recovered/Not Resolved]
  - Product dose omission issue [Unknown]
  - Off label use [Not Recovered/Not Resolved]

NARRATIVE: CASE EVENT DATE: 20181020
